FAERS Safety Report 9878764 (Version 2)
Quarter: 2014Q1

REPORT INFORMATION
  Report Type: Spontaneous
  Country: None (occurrence: US)
  Receive Date: 20140206
  Receipt Date: 20140206
  Transmission Date: 20141002
  Serious: No
  Sender: FDA-Public Use
  Company Number: US-ALLERGAN-1309248US

PATIENT
  Age: 59 Year
  Sex: Male

DRUGS (9)
  1. BOTOX [Suspect]
     Indication: MIGRAINE
     Dosage: 30 UNITS, SINGLE
     Route: 030
     Dates: start: 20130612, end: 20130612
  2. BOTOX [Suspect]
     Dosage: 20 UNITS, SINGLE
     Route: 030
     Dates: start: 20130612, end: 20130612
  3. BOTOX [Suspect]
     Dosage: 5 UNITS, SINGLE
     Route: 030
     Dates: start: 20130612, end: 20130612
  4. BOTOX [Suspect]
     Dosage: 30 UNITS, SINGLE
     Route: 030
     Dates: start: 20130612, end: 20130612
  5. BOTOX [Suspect]
     Dosage: 10 UNITS, SINGLE
     Route: 030
     Dates: start: 20130612, end: 20130612
  6. BOTOX [Suspect]
     Dosage: 10 UNITS, SINGLE
     Route: 030
     Dates: start: 20130612, end: 20130612
  7. BOTOX [Suspect]
     Dosage: 5 UNITS, SINGLE
     Route: 030
     Dates: start: 20130612, end: 20130612
  8. BOTOX [Suspect]
     Dosage: 10 UNITS, SINGLE
     Route: 030
     Dates: start: 20130612, end: 20130612
  9. ACID REFLUX MEDICINE NOS [Concomitant]
     Indication: GASTROOESOPHAGEAL REFLUX DISEASE

REACTIONS (2)
  - Dysgeusia [Recovered/Resolved]
  - Headache [Recovered/Resolved]
